FAERS Safety Report 5264381-1 (Version None)
Quarter: 2007Q1

REPORT INFORMATION
  Report Type: 
  Country: None (occurrence: None)
  Receive Date: 20070309
  Receipt Date: 20070305
  Transmission Date: 20070707
  Serious: Yes (Hospitalization)
  Sender: FDA-Public Use
  Company Number: T07-USA-00801-01

PATIENT
  Age: 72 Year
  Sex: Female

DRUGS (15)
  1. MEMANTINE HCL [Suspect]
     Indication: OPEN ANGLE GLAUCOMA
     Dates: end: 20030516
  2. AVANDIA [Concomitant]
  3. HYDROCODONE/APAP (HYDROCODONE) [Concomitant]
  4. GLIPIZIDE [Concomitant]
  5. ALTACE [Concomitant]
  6. METOPROLOL SUCCINATE [Concomitant]
  7. HYDROCHLOROTHIAZIDE [Concomitant]
  8. ASPIRIN [Concomitant]
  9. DOCUSATE SODIUM [Concomitant]
  10. CENTRUM [Concomitant]
  11. AMOXAPINE [Concomitant]
  12. NAPROXEN [Concomitant]
  13. GLUCOPHAGE [Concomitant]
  14. LOVASTATIN [Concomitant]
  15. LIPITOR [Concomitant]

REACTIONS (3)
  - DISEASE PROGRESSION [None]
  - GLAUCOMA [None]
  - PANCREATITIS [None]
